FAERS Safety Report 7260346-9 (Version None)
Quarter: 2011Q1

REPORT INFORMATION
  Report Type: 
  Country: None (occurrence: None)
  Receive Date: 20110130
  Receipt Date: 20101008
  Transmission Date: 20110831
  Serious: No
  Sender: FDA-Public Use
  Company Number: US-ABBOTT-10P-163-0676939-00

PATIENT
  Sex: Female
  Weight: 49.94 kg

DRUGS (3)
  1. HUMIRA [Suspect]
     Dates: start: 20100601
  2. HUMIRA [Suspect]
     Indication: PSORIASIS
     Dates: start: 20081001, end: 20090301
  3. LISINOPRIL [Concomitant]
     Indication: BLOOD PRESSURE
     Route: 048

REACTIONS (2)
  - AMENORRHOEA [None]
  - HAIR GROWTH ABNORMAL [None]
